FAERS Safety Report 21417596 (Version 2)
Quarter: 2022Q4

REPORT INFORMATION
  Report Type: Spontaneous
  Country: US (occurrence: US)
  Receive Date: 20221006
  Receipt Date: 20221021
  Transmission Date: 20230113
  Serious: Yes (Life-Threatening, Hospitalization)
  Sender: FDA-Public Use
  Company Number: US-TEVA-2022-US-2078716

PATIENT
  Age: 3 Month
  Sex: Male
  Weight: 6.24 kg

DRUGS (14)
  1. DEXMEDETOMIDINE [Suspect]
     Active Substance: DEXMEDETOMIDINE
     Indication: Anaesthesia
     Dosage: DOSE OF (0.4 MCG TO 10 MCG) INTRAOPERATIVELY; REQUIRED ESCALATING INFUSION RATES
     Route: 041
  2. DEXMEDETOMIDINE [Suspect]
     Active Substance: DEXMEDETOMIDINE
     Dosage: REQUIRED REPEATED BOLUSES
     Route: 040
  3. ACETAMINOPHEN\HYDROCODONE [Suspect]
     Active Substance: ACETAMINOPHEN\HYDROCODONE
     Indication: Analgesic therapy
     Route: 048
  4. FENTANYL [Suspect]
     Active Substance: FENTANYL
     Indication: Analgesic therapy
     Dosage: DOSE OF (0.5-1 MCG TO 25 MCG) INTRAOPERATIVELY; REQUIRED ESCALATING INFUSION RATES
     Route: 041
  5. FENTANYL [Suspect]
     Active Substance: FENTANYL
     Indication: Analgesic therapy
     Dosage: REQUIRED REPEATED BOLUSES
     Route: 040
  6. MORPHINE [Suspect]
     Active Substance: MORPHINE
     Indication: Analgesic therapy
     Dosage: IN DIVIDED DOSES
     Route: 042
  7. ROPIVACAINE [Concomitant]
     Active Substance: ROPIVACAINE
     Indication: Product used for unknown indication
     Route: 058
  8. SEVOFLURANE [Concomitant]
     Active Substance: SEVOFLURANE
     Indication: Induction and maintenance of anaesthesia
     Dosage: RECEIVED DOSE (0.7 TO 2)
     Route: 065
  9. SUGAMMADEX [Concomitant]
     Active Substance: SUGAMMADEX
     Indication: Neuromuscular blockade reversal
     Route: 065
  10. KETAMINE [Concomitant]
     Active Substance: KETAMINE
     Indication: Hyperaesthesia
     Dosage: GIVEN IN ALIQUOTS OVER 45 MIN
     Route: 042
  11. KETAMINE [Concomitant]
     Active Substance: KETAMINE
     Dosage: 10 MCG KG-1 H-1
     Route: 041
  12. KETAMINE [Concomitant]
     Active Substance: KETAMINE
     Dosage: 0.3 MCG KG-1 H-1 PLUS AN ADDITIONAL 10MG IN DIVIDED DOSES
     Route: 041
  13. ACETAMINOPHEN [Concomitant]
     Active Substance: ACETAMINOPHEN
     Indication: Analgesic therapy
     Route: 048
  14. BUPIVACAINE [Concomitant]
     Active Substance: BUPIVACAINE
     Indication: Product used for unknown indication
     Route: 058

REACTIONS (2)
  - Hyperaesthesia [Unknown]
  - Drug ineffective [Unknown]
